FAERS Safety Report 13093345 (Version 1)
Quarter: 2017Q1

REPORT INFORMATION
  Report Type: Spontaneous
  Country: US (occurrence: US)
  Receive Date: 20170106
  Receipt Date: 20170106
  Transmission Date: 20170428
  Serious: No
  Sender: FDA-Public Use
  Company Number: US-ASTRAZENECA-2017SE00652

PATIENT
  Age: 679 Month
  Sex: Female
  Weight: 63 kg

DRUGS (3)
  1. BLOOD PRESSURE MEDICATION [Concomitant]
     Active Substance: UNSPECIFIED INGREDIENT
     Indication: BLOOD PRESSURE MEASUREMENT
     Dosage: UNKNOWN
     Route: 065
  2. CRESTOR [Suspect]
     Active Substance: ROSUVASTATIN CALCIUM
     Indication: BLOOD CHOLESTEROL INCREASED
     Route: 048
  3. CRESTOR [Suspect]
     Active Substance: ROSUVASTATIN CALCIUM
     Indication: BLOOD CHOLESTEROL INCREASED
     Dosage: ROSUVASTATIN, 10 MG, DAILY
     Route: 048
     Dates: start: 20161113

REACTIONS (4)
  - Uterine leiomyoma [Unknown]
  - Back pain [Not Recovered/Not Resolved]
  - Back disorder [Unknown]
  - Colitis [Unknown]

NARRATIVE: CASE EVENT DATE: 201611
